FAERS Safety Report 12071097 (Version 3)
Quarter: 2016Q1

REPORT INFORMATION
  Report Type: Report from Study
  Country: BR (occurrence: BR)
  Receive Date: 20160211
  Receipt Date: 20160304
  Transmission Date: 20160526
  Serious: Yes (Other)
  Sender: FDA-Public Use
  Company Number: BR-ABBVIE-16K-020-1555137-00

PATIENT
  Age: 64 Year
  Sex: Female
  Weight: 63 kg

DRUGS (7)
  1. FAMOTIDINE. [Concomitant]
     Active Substance: FAMOTIDINE
     Indication: GASTRIC DISORDER
  2. PREDNISONE. [Concomitant]
     Active Substance: PREDNISONE
     Indication: GASTRIC DISORDER
     Route: 048
     Dates: start: 201506
  3. FAMOTIDINE. [Concomitant]
     Active Substance: FAMOTIDINE
     Indication: PROPHYLAXIS
     Dates: start: 201506
  4. PREMARIN [Concomitant]
     Active Substance: ESTROGENS, CONJUGATED
     Indication: MENOPAUSE
     Route: 048
     Dates: start: 1996
  5. HUMIRA [Suspect]
     Active Substance: ADALIMUMAB
     Route: 058
     Dates: start: 201508
  6. HUMIRA [Suspect]
     Active Substance: ADALIMUMAB
     Indication: RHEUMATOID ARTHRITIS
     Route: 058
     Dates: start: 20110101
  7. PREDNISONE. [Concomitant]
     Active Substance: PREDNISONE
     Indication: PROPHYLAXIS

REACTIONS (7)
  - Activities of daily living impaired [Unknown]
  - Finger deformity [Recovered/Resolved]
  - Mobility decreased [Unknown]
  - Rheumatoid arthritis [Recovered/Resolved]
  - Retinal vascular thrombosis [Recovering/Resolving]
  - Visual acuity reduced [Recovering/Resolving]
  - Eyelid operation [Unknown]

NARRATIVE: CASE EVENT DATE: 2013
